FAERS Safety Report 15315832 (Version 1)
Quarter: 2018Q3

REPORT INFORMATION
  Report Type: Spontaneous
  Country: US (occurrence: US)
  Receive Date: 20180815
  Receipt Date: 20180815
  Transmission Date: 20181010
  Serious: Yes (Hospitalization)
  Sender: FDA-Public Use
  Company Number: None

PATIENT
  Age: 44 Year
  Sex: Male
  Weight: 135 kg

DRUGS (2)
  1. CATHFLO ACTIVASE [Concomitant]
     Active Substance: ALTEPLASE
     Dates: start: 20180709, end: 20180709
  2. CATHFLO ACTIVASE [Suspect]
     Active Substance: ALTEPLASE
     Indication: DEVICE OCCLUSION
     Route: 042
     Dates: start: 20180709, end: 20180709

REACTIONS (5)
  - Pruritus [None]
  - Dyspnoea [None]
  - Chest pain [None]
  - Skin lesion [None]
  - Peripheral swelling [None]

NARRATIVE: CASE EVENT DATE: 20180709
